FAERS Safety Report 8840040 (Version 9)
Quarter: 2013Q3

REPORT INFORMATION
  Report Type: Report from Study
  Country: JP (occurrence: JP)
  Receive Date: 20121015
  Receipt Date: 20130702
  Transmission Date: 20140515
  Serious: Yes (Hospitalization)
  Sender: FDA-Public Use
  Company Number: JP-NAPPMUNDI-GBR-2012-0011631

PATIENT
  Age: 71 Year
  Sex: Female

DRUGS (16)
  1. OXYCODONE HCL PR TABLET [Suspect]
     Indication: CANCER PAIN
     Dosage: 20 MG, DAILY
     Route: 048
     Dates: start: 20100831, end: 20101115
  2. OXYCODONE HCL PR TABLET [Suspect]
     Dosage: 40 MG, DAILY
     Route: 048
     Dates: start: 20100824, end: 20100831
  3. INSIDE                             /00550802/ [Concomitant]
     Indication: CANCER PAIN
     Dosage: 8 MG, DAILY
     Route: 062
     Dates: start: 20101014
  4. INSIDE                             /00550802/ [Concomitant]
     Dosage: UNK
     Route: 062
     Dates: start: 20100828
  5. FENTOS [Concomitant]
     Indication: CANCER PAIN
     Dosage: UNK
     Route: 062
     Dates: start: 20101014
  6. FENTOS [Concomitant]
     Dosage: UNK
     Route: 062
     Dates: start: 20100807, end: 20100905
  7. SEROQUEL [Concomitant]
     Indication: PROPHYLAXIS
     Dosage: UNK
     Route: 048
     Dates: start: 20100826, end: 20101119
  8. PREDNISOLONE [Concomitant]
     Indication: CANCER PAIN
     Dosage: UNK
     Route: 048
     Dates: start: 20100901, end: 20101119
  9. MAGNESIUM OXIDE [Concomitant]
     Indication: PROPHYLAXIS
     Dosage: UNK
     Route: 048
     Dates: end: 20101119
  10. PURSENNID                          /00142207/ [Concomitant]
     Indication: PROPHYLAXIS
     Dosage: UNK
     Dates: start: 20101115, end: 20101119
  11. LACTULOSE [Concomitant]
     Indication: PROPHYLAXIS
     Dosage: UNK
     Route: 048
     Dates: start: 20101116, end: 20101119
  12. BONALON [Concomitant]
     Dosage: 5 MG, UNK
     Route: 048
     Dates: start: 20100824
  13. EBRANTIL                           /00631801/ [Concomitant]
     Dosage: UNK
     Route: 048
     Dates: end: 20101119
  14. AMIGRAND [Concomitant]
     Indication: COLON CANCER
     Dosage: UNK
     Dates: start: 20101116, end: 20101120
  15. AMIGRAND [Concomitant]
     Indication: HEPATIC CANCER METASTATIC
  16. AMIGRAND [Concomitant]
     Indication: METASTASES TO LYMPH NODES

REACTIONS (3)
  - Delirium [Not Recovered/Not Resolved]
  - Insomnia [Recovering/Resolving]
  - Cholangitis [Recovering/Resolving]
